FAERS Safety Report 4781087-3 (Version None)
Quarter: 2005Q3

REPORT INFORMATION
  Report Type: 
  Country: None (occurrence: None)
  Receive Date: 20050926
  Receipt Date: 20050908
  Transmission Date: 20060218
  Serious: Yes (Other)
  Sender: FDA-Public Use
  Company Number: 8011210

PATIENT
  Age: 8 Year
  Sex: Male
  Weight: 26 kg

DRUGS (2)
  1. EQUASYM [Suspect]
     Indication: ATTENTION DEFICIT/HYPERACTIVITY DISORDER
     Dosage: 5 MG / D
     Dates: start: 20050716, end: 20050717
  2. EQUASYM [Suspect]
     Indication: ATTENTION DEFICIT/HYPERACTIVITY DISORDER
     Dosage: 10 MG /D
     Dates: start: 20050718, end: 20050724

REACTIONS (4)
  - AGGRESSION [None]
  - EYE IRRITATION [None]
  - EYE PRURITUS [None]
  - MOVEMENT DISORDER [None]
